FAERS Safety Report 20977218 (Version 1)
Quarter: 2022Q2

REPORT INFORMATION
  Report Type: Spontaneous
  Country: CN (occurrence: CN)
  Receive Date: 20220617
  Receipt Date: 20220617
  Transmission Date: 20220721
  Serious: Yes (Other)
  Sender: FDA-Public Use
  Company Number: CN-009507513-2206CHN004030

PATIENT
  Age: 58 Year
  Sex: Male
  Weight: 41.4 kg

DRUGS (11)
  1. KEYTRUDA [Suspect]
     Active Substance: PEMBROLIZUMAB
     Indication: Lung neoplasm malignant
     Dosage: 200 MG, ONE TIME ONE DAY
     Route: 041
     Dates: start: 20220212, end: 20220212
  2. KEYTRUDA [Suspect]
     Active Substance: PEMBROLIZUMAB
     Dosage: 200 MG, ONE TIME ONE DAY
     Route: 041
     Dates: start: 20220305, end: 20220305
  3. CARBOPLATIN [Suspect]
     Active Substance: CARBOPLATIN
     Indication: Lung neoplasm malignant
     Dosage: 0.45 G, ONE TIME ONE DAY
     Route: 041
     Dates: start: 20220212, end: 20220212
  4. CARBOPLATIN [Suspect]
     Active Substance: CARBOPLATIN
     Dosage: 0.46 G, ONE TIME ONE DAY
     Dates: start: 20220305, end: 20220305
  5. PACLITAXEL [Suspect]
     Active Substance: PACLITAXEL
     Indication: Lung neoplasm malignant
     Dosage: 180 MG, D1, D8 (1 TIME/EVERY 7 DAYS)
     Route: 041
     Dates: start: 20220212, end: 20220219
  6. PACLITAXEL [Suspect]
     Active Substance: PACLITAXEL
     Dosage: 182 MG, D1, D8 (1 TIME/EVERY 7 DAYS)
     Route: 041
     Dates: start: 20220305, end: 20220312
  7. PACLITAXEL [Suspect]
     Active Substance: PACLITAXEL
     Dosage: 165 MG, QD
     Route: 041
     Dates: start: 20220312
  8. SODIUM CHLORIDE [Concomitant]
     Active Substance: SODIUM CHLORIDE
     Indication: Medication dilution
     Dosage: 100 MILLILITER
     Route: 041
     Dates: start: 20220212, end: 20220212
  9. SODIUM CHLORIDE [Concomitant]
     Active Substance: SODIUM CHLORIDE
     Dosage: 100 ML, BID
     Route: 041
     Dates: start: 20220305, end: 20220305
  10. SODIUM CHLORIDE [Concomitant]
     Active Substance: SODIUM CHLORIDE
     Dosage: 33 ML, QD
     Route: 041
     Dates: start: 20220312
  11. DEXTROSE [Concomitant]
     Active Substance: DEXTROSE
     Indication: Medication dilution
     Dosage: 500 ML, ONE TIME ONE DAY
     Route: 041
     Dates: start: 20220305, end: 20220305

REACTIONS (3)
  - Myocardial injury [Recovering/Resolving]
  - Atrial fibrillation [Recovering/Resolving]
  - Sinus tachycardia [Recovering/Resolving]

NARRATIVE: CASE EVENT DATE: 20220315
